FAERS Safety Report 4927439-X (Version None)
Quarter: 2006Q1

REPORT INFORMATION
  Report Type: 
  Country: None (occurrence: None)
  Receive Date: 20060228
  Receipt Date: 20060216
  Transmission Date: 20060701
  Serious: Yes (Other)
  Sender: FDA-Public Use
  Company Number: US-KINGPHARMUSA00001-K200600234

PATIENT
  Age: 69 Year
  Sex: Male

DRUGS (4)
  1. VIROPTIC SOLUTION [Suspect]
     Indication: HERPES SIMPLEX
     Dosage: 1 GTT, IN LEFT EYE QID
     Route: 047
     Dates: start: 20060209, end: 20060216
  2. ALREX [Concomitant]
     Route: 047
  3. ARTIFICIAL TEARS [Concomitant]
     Route: 047
  4. HOMATROPINE [Concomitant]
     Route: 047
     Dates: end: 20060216

REACTIONS (3)
  - EYE PAIN [None]
  - ULCERATIVE KERATITIS [None]
  - UNEVALUABLE EVENT [None]
